FAERS Safety Report 9880232 (Version 1)
Quarter: 2014Q1

REPORT INFORMATION
  Report Type: Spontaneous
  Country: US (occurrence: US)
  Receive Date: 20140207
  Receipt Date: 20140207
  Transmission Date: 20141002
  Serious: No
  Sender: FDA-Public Use
  Company Number: US-BIOGENIDEC-2014BI009561

PATIENT
  Sex: Female
  Weight: 65 kg

DRUGS (3)
  1. TECFIDERA [Suspect]
     Indication: MULTIPLE SCLEROSIS
     Route: 048
     Dates: start: 201310
  2. NEXIUM [Concomitant]
  3. CITALOPRAM [Concomitant]

REACTIONS (2)
  - Urticaria [Not Recovered/Not Resolved]
  - Flushing [Recovered/Resolved]
